FAERS Safety Report 19253057 (Version 1)
Quarter: 2021Q2

REPORT INFORMATION
  Report Type: Spontaneous
  Country: US (occurrence: US)
  Receive Date: 20210513
  Receipt Date: 20210513
  Transmission Date: 20210717
  Serious: Yes (Other)
  Sender: FDA-Public Use
  Company Number: None

PATIENT
  Age: 71 Year
  Sex: Male
  Weight: 91.35 kg

DRUGS (15)
  1. KLOR?CON [Concomitant]
     Active Substance: POTASSIUM CHLORIDE
  2. ZOCOR [Concomitant]
     Active Substance: SIMVASTATIN
  3. COREG [Concomitant]
     Active Substance: CARVEDILOL
  4. CAPECITABINE. [Suspect]
     Active Substance: CAPECITABINE
     Indication: BREAST CANCER MALE
     Route: 048
     Dates: start: 20210426
  5. ASPIRIN. [Concomitant]
     Active Substance: ASPIRIN
  6. TAMOXIFEN [Concomitant]
     Active Substance: TAMOXIFEN
  7. FLOMAX [Concomitant]
     Active Substance: TAMSULOSIN HYDROCHLORIDE
  8. ULTRAM [Concomitant]
     Active Substance: TRAMADOL HYDROCHLORIDE
  9. BENADRYL [Concomitant]
     Active Substance: DIPHENHYDRAMINE HYDROCHLORIDE
  10. LISINOPRIL/HCTZ [Concomitant]
     Active Substance: HYDROCHLOROTHIAZIDE\LISINOPRIL
  11. ZOFRAN [Concomitant]
     Active Substance: ONDANSETRON HYDROCHLORIDE
  12. MIRALAX [Concomitant]
     Active Substance: POLYETHYLENE GLYCOL 3350
  13. PREDNISONE. [Concomitant]
     Active Substance: PREDNISONE
  14. CALCIUM CARB?CHOLECALCIFEROL [Concomitant]
  15. IBUPROFEN. [Concomitant]
     Active Substance: IBUPROFEN

REACTIONS (3)
  - Fatigue [None]
  - Eating disorder [None]
  - Blood count abnormal [None]

NARRATIVE: CASE EVENT DATE: 20210513
